FAERS Safety Report 23890031 (Version 1)
Quarter: 2024Q2

REPORT INFORMATION
  Report Type: Spontaneous
  Country: US (occurrence: US)
  Receive Date: 20240523
  Receipt Date: 20240523
  Transmission Date: 20240716
  Serious: No
  Sender: FDA-Public Use
  Company Number: US-SA-SAC20240520000596

PATIENT
  Age: 60 Year
  Sex: Female
  Weight: 77.24 kg

DRUGS (9)
  1. DUPIXENT [Suspect]
     Active Substance: DUPILUMAB
     Indication: Dermatitis atopic
     Dosage: 600 MG, 1X
     Route: 058
     Dates: start: 20240502, end: 20240502
  2. CHROMIUM PICOLINATE [Concomitant]
     Active Substance: CHROMIUM PICOLINATE
  3. ALBUTEROL SULFATE [Concomitant]
     Active Substance: ALBUTEROL SULFATE
  4. CO-ENZIME Q-10 [Concomitant]
  5. WHEAT GERM OIL [Concomitant]
     Active Substance: WHEAT GERM OIL
  6. VITAMINS NOS [Concomitant]
     Active Substance: VITAMINS
  7. OZEMPIC [Concomitant]
     Active Substance: SEMAGLUTIDE
  8. ARMOUR THYROID [Concomitant]
     Active Substance: THYROID, PORCINE
  9. HAIR/SKIN NAILS [Concomitant]

REACTIONS (1)
  - Dermatitis atopic [Unknown]

NARRATIVE: CASE EVENT DATE: 20240502
